FAERS Safety Report 7385030-2 (Version None)
Quarter: 2011Q1

REPORT INFORMATION
  Report Type: 
  Country: None (occurrence: None)
  Receive Date: 20110330
  Receipt Date: 20110328
  Transmission Date: 20110831
  Serious: Yes (Other)
  Sender: FDA-Public Use
  Company Number: JP-PFIZER INC-2011035788

PATIENT
  Age: 74 Year
  Sex: Female
  Weight: 50 kg

DRUGS (9)
  1. NATRIX [Concomitant]
     Indication: HYPERTENSION
     Dosage: 1 MG, 1X/DAY
     Route: 048
     Dates: start: 20090519
  2. MEILAX [Concomitant]
     Indication: MENTAL DISORDER
     Dosage: 1 MG, 1X/DAY
     Route: 048
     Dates: start: 20090519
  3. TERNELIN [Concomitant]
     Indication: BACK PAIN
     Dosage: 1 MG, 2X/DAY
     Route: 048
     Dates: start: 20090519
  4. ALENDRONATE SODIUM [Concomitant]
     Indication: OSTEOPOROSIS
     Dosage: 35 MG, 1X/DAY
     Route: 048
     Dates: start: 20090519
  5. LYRICA [Suspect]
     Dosage: 75 MG, 1X/DAY
     Route: 048
     Dates: start: 20101203, end: 20110202
  6. PAXIL [Concomitant]
     Indication: DEPRESSION
     Dosage: 10 MG, 1X/DAY
     Route: 048
     Dates: start: 20090519
  7. GASTER [Concomitant]
     Indication: GASTRITIS
     Dosage: 20 MG, 1X/DAY
     Route: 048
     Dates: start: 20090519
  8. LYRICA [Suspect]
     Indication: NEURALGIA
     Dosage: 75 MG, 2X/DAY
     Route: 048
     Dates: start: 20100729, end: 20101202
  9. NORVASC [Concomitant]
     Indication: HYPERTENSION
     Dosage: 5 MG, 1X/DAY
     Route: 048
     Dates: start: 20090519

REACTIONS (1)
  - PARKINSONIAN GAIT [None]
